FAERS Safety Report 6836429-1 (Version None)
Quarter: 2010Q3

REPORT INFORMATION
  Report Type: 
  Country: None (occurrence: None)
  Receive Date: 20100713
  Receipt Date: 20100701
  Transmission Date: 20110219
  Serious: Yes (Hospitalization, Other)
  Sender: FDA-Public Use
  Company Number: US-BAYER-200932240NA

PATIENT
  Age: 22 Year
  Sex: Female
  Weight: 90 kg

DRUGS (3)
  1. YASMIN [Suspect]
     Indication: PRODUCT USED FOR UNKNOWN INDICATION
     Dates: start: 20070501, end: 20070901
  2. PENICILLIN [Concomitant]
     Dates: start: 20030601
  3. AMOXICILLIN [Concomitant]
     Dates: start: 20070131

REACTIONS (5)
  - DIZZINESS [None]
  - FACE INJURY [None]
  - PULMONARY EMBOLISM [None]
  - SYNCOPE [None]
  - VISION BLURRED [None]
